FAERS Safety Report 23141232 (Version 1)
Quarter: 2023Q4

REPORT INFORMATION
  Report Type: Report from Study
  Country: US (occurrence: US)
  Receive Date: 20231103
  Receipt Date: 20231103
  Transmission Date: 20240109
  Serious: Yes (Hospitalization, Other)
  Sender: FDA-Public Use
  Company Number: US-CATALYST PHARMACEUTICALS, INC-US-CATA-23-00609

PATIENT
  Age: 67 Year
  Sex: Male

DRUGS (2)
  1. FIRDAPSE [Suspect]
     Active Substance: AMIFAMPRIDINE PHOSPHATE
     Indication: Myasthenic syndrome
     Dosage: 1 TABLET 3X A DAY; FOR 7 DAYS THEN INCREASE DOSE TO 1.5 TABLETS FOR THE NEXT  WEEK
     Route: 048
     Dates: start: 20231015, end: 20231021
  2. FIRDAPSE [Suspect]
     Active Substance: AMIFAMPRIDINE PHOSPHATE
     Dosage: 1.5 TABLETS 3X A DAY
     Route: 048
     Dates: start: 20231022, end: 20231023

REACTIONS (3)
  - Endotracheal intubation [Not Recovered/Not Resolved]
  - Vomiting [Not Recovered/Not Resolved]
  - Abdominal pain [Not Recovered/Not Resolved]

NARRATIVE: CASE EVENT DATE: 20231022
